FAERS Safety Report 15471344 (Version 2)
Quarter: 2024Q1

REPORT INFORMATION
  Report Type: Spontaneous
  Country: US (occurrence: US)
  Receive Date: 20181006
  Receipt Date: 20240226
  Transmission Date: 20240410
  Serious: Yes (Other)
  Sender: FDA-Public Use
  Company Number: US-JNJFOC-20180930714

PATIENT
  Sex: Male

DRUGS (7)
  1. RISPERDAL [Suspect]
     Active Substance: RISPERIDONE
     Indication: Autism spectrum disorder
     Dosage: 0.5 ML TWICE A DAY
     Route: 048
     Dates: start: 2000
  2. RISPERDAL [Suspect]
     Active Substance: RISPERIDONE
     Dosage: 0.5 ML ONCE A DAY
     Route: 048
     Dates: end: 20010920
  3. RISPERDAL CONSTA [Suspect]
     Active Substance: RISPERIDONE
     Indication: Product used for unknown indication
     Route: 030
     Dates: start: 2000, end: 2001
  4. RISPERDAL CONSTA [Suspect]
     Active Substance: RISPERIDONE
  5. RISPERDAL CONSTA [Suspect]
     Active Substance: RISPERIDONE
  6. RISPERDAL CONSTA [Suspect]
     Active Substance: RISPERIDONE
  7. RISPERIDONE [Suspect]
     Active Substance: RISPERIDONE
     Indication: Product used for unknown indication
     Route: 048
     Dates: start: 2000, end: 2001

REACTIONS (3)
  - Gynaecomastia [Unknown]
  - Obesity [Not Recovered/Not Resolved]
  - Emotional disorder [Unknown]

NARRATIVE: CASE EVENT DATE: 20010101
